FAERS Safety Report 7028986-X (Version None)
Quarter: 2010Q4

REPORT INFORMATION
  Report Type: 
  Country: None (occurrence: None)
  Receive Date: 20101005
  Receipt Date: 20101001
  Transmission Date: 20110411
  Serious: Yes (Other)
  Sender: FDA-Public Use
  Company Number: A0836347A

PATIENT
  Age: 61 Year
  Sex: Male
  Weight: 101.8 kg

DRUGS (5)
  1. AVANDIA [Suspect]
     Dosage: 8MG PER DAY
     Route: 048
     Dates: start: 20061117, end: 20070611
  2. LISINOPRIL AND HYDROCHLOROTHIAZIDE [Concomitant]
  3. GLUCOTROL [Concomitant]
  4. LIPITOR [Concomitant]
  5. TRICOR [Concomitant]

REACTIONS (3)
  - ATRIAL FIBRILLATION [None]
  - CARDIAC FAILURE CONGESTIVE [None]
  - CARDIOMYOPATHY [None]
